FAERS Safety Report 20016148 (Version 1)
Quarter: 2021Q4

REPORT INFORMATION
  Report Type: Spontaneous
  Country: US (occurrence: None)
  Receive Date: 20211102
  Receipt Date: 20211102
  Transmission Date: 20220303
  Serious: No
  Sender: FDA-Public Use
  Company Number: None

PATIENT

DRUGS (2)
  1. METHOTREXATE [Suspect]
     Active Substance: METHOTREXATE
     Route: 048
  2. METHOTREXATE [Suspect]
     Active Substance: METHOTREXATE
     Route: 048

REACTIONS (12)
  - Swollen tongue [None]
  - Acute kidney injury [None]
  - Atrial fibrillation [None]
  - Pancytopenia [None]
  - Mucosal inflammation [None]
  - Toxicity to various agents [None]
  - Inappropriate schedule of product administration [None]
  - Product label issue [None]
  - Product communication issue [None]
  - Contraindication to medical treatment [None]
  - Transcription medication error [None]
  - Product communication issue [None]
